FAERS Safety Report 4345932-8 (Version None)
Quarter: 2004Q1

REPORT INFORMATION
  Report Type: 
  Country: None (occurrence: None)
  Receive Date: 20040325
  Receipt Date: 20031209
  Transmission Date: 20041129
  Serious: No
  Sender: FDA-Public Use
  Company Number: USA031254349

PATIENT
  Age: 73 Year
  Sex: Female

DRUGS (2)
  1. FORTEO [Suspect]
     Indication: OSTEOPOROSIS
     Dates: end: 20031001
  2. DEPAKOTE [Concomitant]

REACTIONS (3)
  - DIFFICULTY IN WALKING [None]
  - MOBILITY DECREASED [None]
  - PAIN IN EXTREMITY [None]
